FAERS Safety Report 17784029 (Version 1)
Quarter: 2020Q2

REPORT INFORMATION
  Report Type: Spontaneous
  Country: US (occurrence: US)
  Receive Date: 20200513
  Receipt Date: 20200513
  Transmission Date: 20200714
  Serious: Yes (Life-Threatening, Hospitalization)
  Sender: FDA-Public Use
  Company Number: None

PATIENT
  Age: 60 Year
  Sex: Male
  Weight: 117.93 kg

DRUGS (1)
  1. METFORMIN (METFORMIN HCL 1000MG TAB) [Suspect]
     Active Substance: METFORMIN HYDROCHLORIDE
     Indication: DIABETES MELLITUS
     Route: 048
     Dates: start: 20170309, end: 20171029

REACTIONS (7)
  - Hypoglycaemia [None]
  - Diarrhoea [None]
  - Nausea [None]
  - Constipation [None]
  - Vomiting [None]
  - Acidosis [None]
  - Tachypnoea [None]

NARRATIVE: CASE EVENT DATE: 20171029
